FAERS Safety Report 8408471-0 (Version None)
Quarter: 2012Q2

REPORT INFORMATION
  Report Type: 
  Country: None (occurrence: None)
  Receive Date: 20120604
  Receipt Date: 20120601
  Transmission Date: 20120825
  Serious: Yes (Hospitalization, Other)
  Sender: FDA-Public Use
  Company Number: GR-ABBOTT-12P-066-0935170-00

PATIENT
  Age: 36 Year
  Sex: Female

DRUGS (11)
  1. CALCIUM CARBONATE [Concomitant]
     Indication: HAEMODIALYSIS
  2. PARICALCITOL [Concomitant]
     Indication: PRODUCT USED FOR UNKNOWN INDICATION
  3. VITAMIN B COMPLEX CAP [Concomitant]
     Indication: PRODUCT USED FOR UNKNOWN INDICATION
     Dosage: AT THE END OF EVERY HD SESSION
  4. DARBEPOETIN ALFA [Concomitant]
     Indication: PRODUCT USED FOR UNKNOWN INDICATION
     Route: 065
  5. TINZAPARIN [Concomitant]
  6. LEVOCARNITINE [Concomitant]
     Indication: PRODUCT USED FOR UNKNOWN INDICATION
     Dosage: AT THE END OF EVERY HD SESSION
     Route: 065
  7. IRON SUCROSE [Concomitant]
     Indication: HAEMODIALYSIS
     Route: 042
  8. PROMETRIUM [Suspect]
     Indication: PROPHYLAXIS OF ABORTION
     Dosage: START AT 22 WEEKS OF PREGNANCY
     Route: 065
  9. SEVELAMER HYDROCHLORIDE [Concomitant]
     Indication: PRODUCT USED FOR UNKNOWN INDICATION
     Route: 065
  10. TINZAPARIN [Concomitant]
     Indication: THROMBOSIS PROPHYLAXIS
     Dosage: 3 500 IU PER HD SESSION
  11. FOLIC ACID [Concomitant]
     Indication: HAEMODIALYSIS

REACTIONS (4)
  - PREMATURE RUPTURE OF MEMBRANES [None]
  - MATERNAL EXPOSURE DURING PREGNANCY [None]
  - CAESAREAN SECTION [None]
  - OFF LABEL USE [None]
